FAERS Safety Report 19586509 (Version 3)
Quarter: 2022Q1

REPORT INFORMATION
  Report Type: Report from Study
  Country: US (occurrence: US)
  Receive Date: 20210721
  Receipt Date: 20220217
  Transmission Date: 20220423
  Serious: Yes (Hospitalization)
  Sender: FDA-Public Use
  Company Number: US-BRISTOL-MYERS SQUIBB COMPANY-BMS-2021-048691

PATIENT
  Age: 82 Year
  Sex: Female
  Weight: 74.83 kg

DRUGS (10)
  1. APIXABAN [Suspect]
     Active Substance: APIXABAN
     Indication: Transient ischaemic attack
     Dosage: 5 MILLIGRAM, BID
     Route: 048
     Dates: start: 202011
  2. CARVEDILOL [Suspect]
     Active Substance: CARVEDILOL
     Indication: Product used for unknown indication
     Dosage: UNK
     Route: 065
  3. AMLODIPINE [Suspect]
     Active Substance: AMLODIPINE BESYLATE
     Indication: Product used for unknown indication
     Dosage: UNK
     Route: 065
  4. BYSTOLIC [Concomitant]
     Active Substance: NEBIVOLOL HYDROCHLORIDE
     Indication: Blood pressure measurement
     Dosage: UNK
     Route: 065
  5. VITAMIN D3 [Concomitant]
     Active Substance: CHOLECALCIFEROL
     Indication: Product used for unknown indication
     Dosage: UNK
     Route: 065
  6. CALCIUM [Concomitant]
     Active Substance: CALCIUM
     Indication: Product used for unknown indication
     Dosage: UNK
     Route: 065
  7. FISH OIL [Concomitant]
     Active Substance: FISH OIL
     Indication: Product used for unknown indication
     Dosage: UNK
     Route: 065
  8. BENZALKONIUM CHLORIDE\SODIUM CHLORIDE [Concomitant]
     Active Substance: BENZALKONIUM CHLORIDE\SODIUM CHLORIDE
     Indication: Product used for unknown indication
     Dosage: UNK
     Route: 065
  9. BENTEL [Concomitant]
     Indication: Product used for unknown indication
     Dosage: AS NEEDED
     Route: 065
  10. CALCIUM CARBONATE [Concomitant]
     Active Substance: CALCIUM CARBONATE
     Indication: Product used for unknown indication
     Dosage: AS NEEDED
     Route: 065

REACTIONS (22)
  - Herpes zoster [Unknown]
  - Condition aggravated [Unknown]
  - Swelling [Unknown]
  - Dry skin [Unknown]
  - Constipation [Unknown]
  - Lip swelling [Unknown]
  - Chromaturia [Unknown]
  - Muscle tightness [Unknown]
  - Emotional disorder [Unknown]
  - Gait disturbance [Unknown]
  - Asthenia [Unknown]
  - Hypertension [Recovering/Resolving]
  - Pain in extremity [Unknown]
  - Lymphoedema [Unknown]
  - Muscle spasms [Unknown]
  - Cough [Unknown]
  - Body height decreased [Unknown]
  - Thinking abnormal [Unknown]
  - Feeling abnormal [Unknown]
  - Dizziness [Unknown]
  - Ear discomfort [Unknown]
  - Insomnia [Unknown]
